FAERS Safety Report 17880037 (Version 3)
Quarter: 2020Q3

REPORT INFORMATION
  Report Type: Report from Study
  Country: None (occurrence: US)
  Receive Date: 20200610
  Receipt Date: 20200901
  Transmission Date: 20201103
  Serious: Yes (Hospitalization, Other)
  Sender: FDA-Public Use
  Company Number: US-ABBVIE-20K-163-3435228-00

PATIENT
  Age: 71 Year
  Sex: Male
  Weight: 99.88 kg

DRUGS (5)
  1. HUMIRA [Suspect]
     Active Substance: ADALIMUMAB
     Indication: CROHN^S DISEASE
     Route: 058
  2. PENTASA [Concomitant]
     Active Substance: MESALAMINE
     Indication: PRODUCT USED FOR UNKNOWN INDICATION
  3. LISINOPRIL. [Concomitant]
     Active Substance: LISINOPRIL
     Indication: PRODUCT USED FOR UNKNOWN INDICATION
  4. LOPERAMIDE [Concomitant]
     Active Substance: LOPERAMIDE
     Indication: DIARRHOEA
  5. ALLOPURINOL. [Concomitant]
     Active Substance: ALLOPURINOL
     Indication: PRODUCT USED FOR UNKNOWN INDICATION

REACTIONS (11)
  - Hernia [Recovering/Resolving]
  - Gastrointestinal inflammation [Recovering/Resolving]
  - Malaise [Unknown]
  - Eye injury [Recovering/Resolving]
  - Weight increased [Recovered/Resolved]
  - Contusion [Recovering/Resolving]
  - Intestinal obstruction [Recovering/Resolving]
  - Fall [Recovered/Resolved]
  - Renal disorder [Not Recovered/Not Resolved]
  - Influenza [Recovered/Resolved]
  - Nephrolithiasis [Unknown]

NARRATIVE: CASE EVENT DATE: 201901
